FAERS Safety Report 12261218 (Version 3)
Quarter: 2016Q3

REPORT INFORMATION
  Report Type: Spontaneous
  Country: US (occurrence: US)
  Receive Date: 20160412
  Receipt Date: 20160831
  Transmission Date: 20161109
  Serious: No
  Sender: FDA-Public Use
  Company Number: US-INCYTE CORPORATION-2016IN000093

PATIENT
  Age: 68 Year
  Sex: Female
  Weight: 81.2 kg

DRUGS (10)
  1. BENADRYL [Concomitant]
     Active Substance: DIPHENHYDRAMINE HYDROCHLORIDE
     Indication: PRODUCT USED FOR UNKNOWN INDICATION
     Dosage: TAKE AS NEEDED
     Route: 048
  2. JAKAFI [Suspect]
     Active Substance: RUXOLITINIB
     Indication: MYELOFIBROSIS
     Dosage: 20 MG, QD (AT BEDITME)
     Route: 048
     Dates: start: 20160127
  3. JAKAFI [Suspect]
     Active Substance: RUXOLITINIB
     Dosage: 10 MG, QD PM (20 MG TABLET BROKEN IN HALF)
     Route: 048
  4. ASPIRIN. [Concomitant]
     Active Substance: ASPIRIN
     Indication: PRODUCT USED FOR UNKNOWN INDICATION
     Dosage: 81 MG, QD
     Route: 048
  5. HYDROXYUREA. [Suspect]
     Active Substance: HYDROXYUREA
     Indication: POLYCYTHAEMIA VERA
     Dosage: 500 MG, QD
     Route: 048
     Dates: end: 20160105
  6. AIRBORNE [Concomitant]
     Active Substance: HERBALS\MINERALS\VITAMINS
     Indication: PRODUCT USED FOR UNKNOWN INDICATION
     Dosage: TAKE DAILY
     Route: 048
  7. JAKAFI [Suspect]
     Active Substance: RUXOLITINIB
     Indication: POLYCYTHAEMIA VERA
     Dosage: 20 MG, BID
     Route: 048
     Dates: start: 20151222, end: 20160120
  8. HYDROXYUREA. [Suspect]
     Active Substance: HYDROXYUREA
     Dosage: 500 MG, EVERY OTHER DAY
     Route: 048
     Dates: start: 20160108
  9. FERROUS SULFATE. [Concomitant]
     Active Substance: FERROUS SULFATE
     Indication: PRODUCT USED FOR UNKNOWN INDICATION
     Dosage: 325 MG
  10. CETAPHIL                           /00498501/ [Concomitant]
     Indication: PRODUCT USED FOR UNKNOWN INDICATION

REACTIONS (43)
  - Feeling abnormal [Unknown]
  - Gastric dilatation [Unknown]
  - Blood lactate dehydrogenase increased [Unknown]
  - Rash [Unknown]
  - Diarrhoea [Unknown]
  - Haemoglobin decreased [Recovered/Resolved]
  - Tachycardia [Recovered/Resolved]
  - Dry mouth [Unknown]
  - Anxiety [Unknown]
  - Pain [Unknown]
  - Therapeutic response unexpected [Unknown]
  - Peripheral swelling [Recovered/Resolved]
  - White blood cell count decreased [Recovered/Resolved]
  - Malaise [Recovered/Resolved]
  - Depression [Unknown]
  - Full blood count abnormal [Unknown]
  - Abdominal pain upper [Unknown]
  - Oral herpes [Unknown]
  - Migraine [Unknown]
  - Platelet count increased [Unknown]
  - Red cell distribution width increased [Unknown]
  - Mean platelet volume increased [Unknown]
  - Influenza like illness [Unknown]
  - Somnolence [Unknown]
  - Dysphonia [Unknown]
  - Nausea [Unknown]
  - Haematocrit decreased [Recovered/Resolved]
  - Cough [Unknown]
  - Red blood cell count abnormal [Unknown]
  - Wrong technique in product usage process [Unknown]
  - Hypoaesthesia [Unknown]
  - Muscular weakness [Unknown]
  - Vomiting [Unknown]
  - Bone pain [Unknown]
  - Sinus headache [Unknown]
  - Drug administration error [Unknown]
  - Abdominal pain [Unknown]
  - Headache [Unknown]
  - Cystitis [Recovering/Resolving]
  - Loss of consciousness [Unknown]
  - Constipation [Unknown]
  - Dizziness [Unknown]
  - Fatigue [Unknown]

NARRATIVE: CASE EVENT DATE: 20160106
